FAERS Safety Report 8760258 (Version 5)
Quarter: 2012Q4

REPORT INFORMATION
  Report Type: 
  Country: SE (occurrence: SE)
  Receive Date: 20120830
  Receipt Date: 20121009
  Transmission Date: 20130627
  Serious: Yes (Death, Hospitalization, Other)
  Sender: FDA-Public Use
  Company Number: SE-AMGEN-SWESP2012054224

PATIENT
  Age: 63 Year
  Sex: Male
  Weight: 88 kg

DRUGS (6)
  1. VECTIBIX [Suspect]
     Indication: COLON CANCER METASTATIC
     Dosage: 20mg/ml (500 mg), q2wk
     Route: 042
     Dates: start: 201201
  2. IRINOTECAN [Suspect]
     Indication: COLON CANCER METASTATIC
     Dosage: 400 mg, UNK
     Dates: start: 20120308
  3. 5-FU [Suspect]
     Indication: COLON CANCER METASTATIC
     Dosage: 1000 mg, UNK
     Dates: start: 20120308
  4. FRAGMIN [Suspect]
     Indication: PULMONARY EMBOLISM
     Dosage: 15000 IU, UNK
  5. OMEPRAZOLE [Concomitant]
  6. WARAN [Concomitant]

REACTIONS (6)
  - Hepatic haemorrhage [Fatal]
  - Skin reaction [Not Recovered/Not Resolved]
  - Stomatitis [Not Recovered/Not Resolved]
  - Skin necrosis [Not Recovered/Not Resolved]
  - Pulmonary embolism [Unknown]
  - Blood potassium increased [Unknown]
